FAERS Safety Report 7880991-7 (Version None)
Quarter: 2011Q4

REPORT INFORMATION
  Report Type: 
  Country: None (occurrence: None)
  Receive Date: 20111101
  Receipt Date: 20111021
  Transmission Date: 20120403
  Serious: Yes (Other)
  Sender: FDA-Public Use
  Company Number: FR-MERCK-1110FRA00094

PATIENT
  Age: 33 Year
  Sex: Female

DRUGS (5)
  1. ISENTRESS [Suspect]
     Indication: HIV INFECTION
     Route: 048
     Dates: start: 20100101, end: 20110921
  2. EMTRICITABINE AND TENOFOVIR DISOPROXIL FUMARATE [Suspect]
     Indication: HIV INFECTION
     Route: 065
  3. CYAMEMAZINE [Suspect]
     Route: 048
  4. IRBESARTAN [Concomitant]
     Route: 065
     Dates: start: 20110629
  5. ESCITALOPRAM OXALATE [Suspect]
     Indication: HIV INFECTION
     Route: 048
     Dates: start: 20110509

REACTIONS (1)
  - PANCREATIC DISORDER [None]
